FAERS Safety Report 10382334 (Version 6)
Quarter: 2015Q4

REPORT INFORMATION
  Report Type: Report from Study
  Country: US (occurrence: US)
  Receive Date: 20140813
  Receipt Date: 20151130
  Transmission Date: 20160304
  Serious: Yes (Other)
  Sender: FDA-Public Use
  Company Number: US-SA-2014SA073906

PATIENT
  Age: 54 Year
  Sex: Male

DRUGS (8)
  1. CELEXA [Concomitant]
     Active Substance: CITALOPRAM HYDROBROMIDE
  2. SEROQUEL [Concomitant]
     Active Substance: QUETIAPINE FUMARATE
  3. AUBAGIO [Suspect]
     Active Substance: TERIFLUNOMIDE
     Indication: MULTIPLE SCLEROSIS
     Route: 048
     Dates: start: 20140712, end: 20151116
  4. TRAMADOL. [Concomitant]
     Active Substance: TRAMADOL
  5. AUBAGIO [Suspect]
     Active Substance: TERIFLUNOMIDE
     Indication: MULTIPLE SCLEROSIS
     Route: 048
     Dates: start: 20140523
  6. AUBAGIO [Suspect]
     Active Substance: TERIFLUNOMIDE
     Indication: MULTIPLE SCLEROSIS
     Route: 048
     Dates: start: 20140702
  7. AUBAGIO [Suspect]
     Active Substance: TERIFLUNOMIDE
     Indication: MULTIPLE SCLEROSIS
     Route: 048
     Dates: start: 20140524, end: 20140602
  8. CELEXA [Concomitant]
     Active Substance: CITALOPRAM HYDROBROMIDE
     Indication: DEPRESSION

REACTIONS (33)
  - Hemiparesis [Unknown]
  - Protein urine present [Unknown]
  - Arthralgia [Unknown]
  - Weight decreased [Unknown]
  - Concussion [Unknown]
  - Pain [Recovered/Resolved]
  - Depressed mood [Unknown]
  - Somnolence [Unknown]
  - Cough [Unknown]
  - Dysuria [Unknown]
  - Diarrhoea [Unknown]
  - Pruritus [Recovered/Resolved]
  - Depression [Recovering/Resolving]
  - Confusional state [Unknown]
  - Drooling [Unknown]
  - Headache [Unknown]
  - Blood urine present [Recovering/Resolving]
  - Seizure [Unknown]
  - Fall [Unknown]
  - Multiple sclerosis relapse [Not Recovered/Not Resolved]
  - Nuclear magnetic resonance imaging abnormal [Unknown]
  - Memory impairment [Unknown]
  - Formication [Unknown]
  - Back pain [Unknown]
  - Drug dose omission [Unknown]
  - Fatigue [Unknown]
  - Feeling abnormal [Unknown]
  - Vision blurred [Unknown]
  - Visual impairment [Unknown]
  - Pain in extremity [Recovered/Resolved]
  - Hypoacusis [Unknown]
  - Bone pain [Unknown]
  - Abdominal pain upper [Unknown]

NARRATIVE: CASE EVENT DATE: 2014
